FAERS Safety Report 8371402-6 (Version None)
Quarter: 2012Q2

REPORT INFORMATION
  Report Type: 
  Country: None (occurrence: None)
  Receive Date: 20120518
  Receipt Date: 20120510
  Transmission Date: 20120825
  Serious: Yes (Hospitalization)
  Sender: FDA-Public Use
  Company Number: US-FRI-1000030433

PATIENT
  Age: 51 Year
  Sex: Female
  Weight: 77 kg

DRUGS (5)
  1. XANAX XR [Suspect]
     Indication: ANXIETY
     Dosage: 3 MG
     Route: 048
     Dates: start: 20040101
  2. XANAX XR [Suspect]
     Indication: DEPRESSION
  3. LIPITOR [Concomitant]
     Indication: BLOOD CHOLESTEROL INCREASED
     Dosage: 10 MG
     Dates: start: 20000101
  4. LEXAPRO [Suspect]
     Indication: DEPRESSION
     Dosage: 10 MG
     Dates: start: 20040101
  5. XANAX XR [Suspect]
     Indication: PANIC ATTACK

REACTIONS (2)
  - MENTAL DISORDER [None]
  - MALAISE [None]
